FAERS Safety Report 8512206-0 (Version None)
Quarter: 2012Q3

REPORT INFORMATION
  Report Type: 
  Country: None (occurrence: None)
  Receive Date: 20120716
  Receipt Date: 20120712
  Transmission Date: 20120928
  Serious: Yes (Death)
  Sender: FDA-Public Use
  Company Number: US-CELGENEUS-163-21880-12063322

PATIENT
  Sex: Female
  Weight: 55.842 kg

DRUGS (9)
  1. LOPERAMIDE HCL [Concomitant]
     Dosage: 2 MILLIGRAM
     Route: 048
  2. CITALOPRAM HYDROBROMIDE [Concomitant]
     Dosage: 10 MILLIGRAM
     Route: 048
  3. IBUPROFEN [Concomitant]
     Dosage: 600 MILLIGRAM
     Route: 048
  4. REVLIMID [Suspect]
     Indication: MULTIPLE MYELOMA
     Dosage: 15 MILLIGRAM
     Route: 048
     Dates: start: 20110929, end: 20111025
  5. NORCO [Concomitant]
     Indication: PAIN
     Dosage: 5MG-325MG/1-2
     Route: 048
  6. TEMAZEPAM [Concomitant]
     Indication: INSOMNIA
     Dosage: 15 MILLIGRAM
     Route: 048
  7. TYLENOL W/ CODEINE [Concomitant]
     Indication: PAIN
     Dosage: 30-300MG/1
     Route: 048
  8. ATIVAN [Concomitant]
     Indication: NAUSEA
     Dosage: 0.5-1.0MG
     Route: 065
  9. DEXAMETHASONE [Concomitant]
     Dosage: 4 MILLIGRAM
     Route: 048

REACTIONS (1)
  - MULTIPLE MYELOMA [None]
